FAERS Safety Report 8608589 (Version 3)
Quarter: 2013Q4

REPORT INFORMATION
  Report Type: Spontaneous
  Country: US (occurrence: US)
  Receive Date: 20120611
  Receipt Date: 20131220
  Transmission Date: 20140711
  Serious: Yes (Death, Hospitalization)
  Sender: FDA-Public Use
  Company Number: US-GLAXOSMITHKLINE-A0980650A

PATIENT
  Age: 39 Year
  Sex: Female
  Weight: 77 kg

DRUGS (1)
  1. FLOLAN [Suspect]
     Indication: PRODUCT USED FOR UNKNOWN INDICATION
     Dosage: 22.3NGKM SEE DOSAGE TEXT
     Route: 065
     Dates: start: 20030219

REACTIONS (8)
  - Bronchopneumonia [Fatal]
  - Pulmonary hypertension [Fatal]
  - Respiratory arrest [Unknown]
  - Loss of consciousness [Unknown]
  - Respiratory failure [Unknown]
  - Haemoptysis [Unknown]
  - Condition aggravated [Unknown]
  - Adverse event [Unknown]
